FAERS Safety Report 9691156 (Version 1)
Quarter: 2013Q4

REPORT INFORMATION
  Report Type: Spontaneous
  Country: DE (occurrence: DE)
  Receive Date: 20131115
  Receipt Date: 20131115
  Transmission Date: 20140711
  Serious: Yes (Other)
  Sender: FDA-Public Use
  Company Number: DE-GLAXOSMITHKLINE-D0081798A

PATIENT
  Sex: Male

DRUGS (4)
  1. ARIXTRA [Suspect]
     Route: 065
  2. FRAXIPARIN [Suspect]
     Route: 065
  3. ASS [Suspect]
     Route: 065
  4. PLAVIX [Suspect]
     Route: 065

REACTIONS (1)
  - Vascular graft occlusion [Unknown]
